FAERS Safety Report 24921872 (Version 3)
Quarter: 2025Q3

REPORT INFORMATION
  Report Type: Spontaneous
  Country: EU (occurrence: EU)
  Receive Date: 20250204
  Receipt Date: 20250722
  Transmission Date: 20251021
  Serious: Yes (Hospitalization, Other)
  Sender: ACCORD
  Company Number: EU-Accord-467155

PATIENT
  Age: 37 Year
  Sex: Male
  Weight: 71 kg

DRUGS (21)
  1. IRINOTECAN [Suspect]
     Active Substance: IRINOTECAN
     Indication: Ewing^s sarcoma
     Route: 042
     Dates: start: 20240708, end: 20240708
  2. TEMOZOLOMIDE [Suspect]
     Active Substance: TEMOZOLOMIDE
     Indication: Ewing^s sarcoma
     Route: 048
     Dates: start: 20240708, end: 20240708
  3. LEVOTHYROXINE [Concomitant]
     Active Substance: LEVOTHYROXINE
     Dates: start: 202304
  4. LEVOTHYROXINE SODIUM\LIOTHYRONINE SODIUM [Concomitant]
     Active Substance: LEVOTHYROXINE SODIUM\LIOTHYRONINE SODIUM
     Dates: start: 20230428
  5. VALACYCLOVIR HYDROCHLORIDE [Concomitant]
     Active Substance: VALACYCLOVIR HYDROCHLORIDE
     Dates: start: 202310
  6. BACTRIM [Concomitant]
     Active Substance: SULFAMETHOXAZOLE\TRIMETHOPRIM
     Dates: start: 202310
  7. CEFIXIM [Concomitant]
     Active Substance: CEFIXIME
     Dates: start: 20240710
  8. DESLORATADINE [Concomitant]
     Active Substance: DESLORATADINE
     Dates: start: 1994
  9. ONCTOSE [Concomitant]
     Dates: start: 20240710
  10. DIPROSONE [Concomitant]
     Active Substance: BETAMETHASONE DIPROPIONATE
     Dates: start: 20240710
  11. MONTMORILLONITE [Concomitant]
     Active Substance: MONTMORILLONITE
     Dates: start: 20240710
  12. RACECADOTRIL [Concomitant]
     Active Substance: RACECADOTRIL
     Dates: start: 20240710
  13. LOPERAMIDE [Concomitant]
     Active Substance: LOPERAMIDE
     Dates: start: 20240710
  14. SODIUM BICARBONATE [Concomitant]
     Active Substance: SODIUM BICARBONATE
     Dates: start: 20020710
  15. PHLOROGLUCINOL [Concomitant]
     Active Substance: PHLOROGLUCINOL
     Dates: start: 20240719
  16. TRIMEBUTINE MALEATE [Concomitant]
     Active Substance: TRIMEBUTINE MALEATE
     Dates: start: 20240719
  17. FILGRASTIM [Concomitant]
     Active Substance: FILGRASTIM
     Dates: start: 20240729
  18. ATROPINE [Concomitant]
     Active Substance: ATROPINE
     Dates: start: 20240729
  19. TADALAFIL [Concomitant]
     Active Substance: TADALAFIL
     Dates: start: 20241106
  20. TEMOZOLOMIDE [Suspect]
     Active Substance: TEMOZOLOMIDE
     Indication: Ewing^s sarcoma
     Dates: start: 20250103, end: 20250103
  21. IRINOTECAN [Suspect]
     Active Substance: IRINOTECAN
     Indication: Ewing^s sarcoma
     Route: 042
     Dates: start: 20250103, end: 20250103

REACTIONS (1)
  - Enteritis [Recovered/Resolved]

NARRATIVE: CASE EVENT DATE: 20250104
